FAERS Safety Report 7797951-7 (Version None)
Quarter: 2011Q4

REPORT INFORMATION
  Report Type: 
  Country: None (occurrence: None)
  Receive Date: 20111005
  Receipt Date: 20110826
  Transmission Date: 20120403
  Serious: Yes (Hospitalization)
  Sender: FDA-Public Use
  Company Number: US-GLAXOSMITHKLINE-A0943019A

PATIENT
  Age: 54 Year
  Sex: Female
  Weight: 58 kg

DRUGS (27)
  1. FLOLAN [Suspect]
     Indication: PULMONARY ARTERIAL HYPERTENSION
     Dosage: 78NGKM UNKNOWN
     Route: 042
     Dates: start: 20100316
  2. DEPO-PROVERA [Concomitant]
     Dosage: 1INJ AS DIRECTED
  3. OXYCONTIN [Concomitant]
     Dosage: 10MG THREE TIMES PER DAY
  4. LOPERAMIDE HCL [Concomitant]
     Dosage: 2MG TWICE PER DAY
  5. PYRIDOSTIGMINE BROMIDE [Concomitant]
     Dosage: 60MG THREE TIMES PER DAY
  6. FLUDROCORTISONE ACETATE [Concomitant]
     Dosage: .2MG TWICE PER DAY
  7. TRIAMCINOLONE [Concomitant]
     Route: 061
  8. ZINC SULFATE [Concomitant]
     Dosage: 220MG TWICE PER DAY
  9. LACTULOSE [Concomitant]
     Dosage: 20G PER DAY
  10. ACETAMINOPHEN [Concomitant]
     Dosage: 500MG FOUR TIMES PER DAY
     Route: 048
  11. CREAM [Concomitant]
     Route: 061
  12. POTASSIUM [Concomitant]
     Dosage: 20MEQ PER DAY
  13. ZOFRAN [Concomitant]
     Dosage: 4MG AS REQUIRED
  14. NEOMYCIN [Concomitant]
     Dosage: 500MG THREE TIMES PER DAY
  15. FUROSEMIDE [Concomitant]
     Dosage: 40MGD PER DAY
  16. TPN [Concomitant]
     Dosage: 45ML TWENTY FOUR TIMES PER DAY
     Route: 050
  17. MACROBID [Concomitant]
     Dosage: 100MG AT NIGHT
  18. OXYCODONE HCL [Concomitant]
     Dosage: 5MG VARIABLE DOSE
     Route: 048
  19. ALBUTEROL [Concomitant]
     Dosage: 2PUFF SIX TIMES PER DAY
     Route: 055
  20. LUBRIDERM [Concomitant]
     Route: 061
  21. DOXYCYCLINE [Concomitant]
     Dosage: 100MGD PER DAY
  22. MIDODRINE HYDROCHLORIDE [Concomitant]
     Dosage: 10MG THREE TIMES PER DAY
  23. XIFAXAN [Concomitant]
     Dosage: 550MG TWICE PER DAY
  24. SANDOSTATIN [Concomitant]
     Dosage: 30MG WEEKLY
  25. MULTI-VITAMIN [Concomitant]
     Dosage: 1TAB PER DAY
     Route: 048
  26. SILDENAFIL CITRATE [Concomitant]
     Dosage: 50MG TWICE PER DAY
  27. KEFLEX [Concomitant]
     Dosage: 500MG TWICE PER DAY
     Dates: end: 20110927

REACTIONS (3)
  - GASTROINTESTINAL HAEMORRHAGE [None]
  - URINARY TRACT INFECTION [None]
  - OESOPHAGEAL HAEMORRHAGE [None]
